FAERS Safety Report 16760285 (Version 1)
Quarter: 2019Q3

REPORT INFORMATION
  Report Type: Spontaneous
  Country: US (occurrence: US)
  Receive Date: 20190830
  Receipt Date: 20190830
  Transmission Date: 20191005
  Serious: No
  Sender: FDA-Public Use
  Company Number: US-PRINSTON PHARMACEUTICAL INC.-2019PRN00560

PATIENT
  Sex: Female

DRUGS (1)
  1. DULOXETINE. [Suspect]
     Active Substance: DULOXETINE
     Indication: MENTAL DISORDER

REACTIONS (3)
  - Mental disorder [Not Recovered/Not Resolved]
  - Product substitution issue [Not Recovered/Not Resolved]
  - Drug ineffective [Not Recovered/Not Resolved]
